FAERS Safety Report 12764495 (Version 1)
Quarter: 2016Q3

REPORT INFORMATION
  Report Type: Spontaneous
  Country: US (occurrence: US)
  Receive Date: 20160920
  Receipt Date: 20160920
  Transmission Date: 20161109
  Serious: No
  Sender: FDA-Public Use
  Company Number: US-ALLERGAN-1655637US

PATIENT
  Age: 59 Year
  Sex: Female

DRUGS (3)
  1. LATANAPROST/TIMOLOL [Concomitant]
     Indication: GLAUCOMA
     Route: 047
  2. REFRESH CELLUVISC [Concomitant]
     Active Substance: CARBOXYMETHYLCELLULOSE SODIUM
     Indication: DRY EYE
     Dosage: UNK
     Route: 047
  3. LASTACAFT [Suspect]
     Active Substance: ALCAFTADINE
     Indication: EYE PRURITUS
     Dosage: 2 GTT, QD
     Route: 047
     Dates: start: 201506, end: 20160430

REACTIONS (4)
  - Ocular hyperaemia [Recovering/Resolving]
  - Incorrect product storage [Unknown]
  - Lacrimation increased [Recovered/Resolved]
  - Eye irritation [Not Recovered/Not Resolved]

NARRATIVE: CASE EVENT DATE: 2015
